FAERS Safety Report 23197783 (Version 4)
Quarter: 2024Q4

REPORT INFORMATION
  Report Type: Report from Study
  Country: MX (occurrence: MX)
  Receive Date: 20231117
  Receipt Date: 20241203
  Transmission Date: 20250115
  Serious: Yes (Death, Hospitalization, Other)
  Sender: TAKEDA
  Company Number: MX-TAKEDA-2023TUS110985

PATIENT
  Age: 19 Year
  Sex: Male

DRUGS (2)
  1. IDURSULFASE [Suspect]
     Active Substance: IDURSULFASE
     Indication: Mucopolysaccharidosis II
     Dosage: 14.5 MILLIGRAM, 1/WEEK
     Dates: start: 201506
  2. IDURSULFASE [Suspect]
     Active Substance: IDURSULFASE
     Dosage: 12 MILLIGRAM, 1/WEEK
     Dates: end: 202411

REACTIONS (13)
  - Cardio-respiratory arrest [Fatal]
  - Hyperthermia [Unknown]
  - Feeding intolerance [Unknown]
  - Hypoperfusion [Unknown]
  - Tachycardia [Unknown]
  - Dyspnoea [Unknown]
  - Localised oedema [Recovering/Resolving]
  - Ileus paralytic [Unknown]
  - Disease recurrence [Unknown]
  - Abdominal discomfort [Recovering/Resolving]
  - Toothache [Unknown]
  - Dental caries [Not Recovered/Not Resolved]
  - Dehydration [Not Recovered/Not Resolved]

NARRATIVE: CASE EVENT DATE: 20231108
